FAERS Safety Report 21339204 (Version 3)
Quarter: 2023Q4

REPORT INFORMATION
  Report Type: Report from Study
  Country: FR (occurrence: FR)
  Receive Date: 20220915
  Receipt Date: 20231130
  Transmission Date: 20240109
  Serious: Yes (Other)
  Sender: FDA-Public Use
  Company Number: FR-BIOCRYST PHARMACEUTICALS, INC.-2022BCR00611

PATIENT
  Age: 48 Year
  Sex: Female
  Weight: 109 kg

DRUGS (4)
  1. ORLADEYO [Suspect]
     Active Substance: BEROTRALSTAT HYDROCHLORIDE
     Indication: Hereditary angioedema
     Dosage: 150 MG, 1X/DAY (CLINICAL DRUG SUPPLY)
     Route: 048
     Dates: start: 20201105, end: 20211104
  2. ORLADEYO [Suspect]
     Active Substance: BEROTRALSTAT HYDROCHLORIDE
     Dosage: 150 MG, QD (SWITCH TO MARKETED DRUG SUPPLY)
     Route: 048
     Dates: start: 20211105
  3. NOMEGESTROL ACETATE [Concomitant]
     Active Substance: NOMEGESTROL ACETATE
     Indication: Oral contraception
     Dosage: 5 MG, 1X/DAY
     Route: 048
     Dates: start: 201605, end: 20210408
  4. FIRAZYR [Concomitant]
     Active Substance: ICATIBANT ACETATE
     Indication: Hereditary angioedema
     Dosage: UNK

REACTIONS (3)
  - Hereditary angioedema [Recovered/Resolved]
  - Meningioma [Recovering/Resolving]
  - Diarrhoea [Recovering/Resolving]

NARRATIVE: CASE EVENT DATE: 20201205
